FAERS Safety Report 9059743 (Version 2)
Quarter: 2013Q1

REPORT INFORMATION
  Report Type: Spontaneous
  Country: JP (occurrence: JP)
  Receive Date: 20130211
  Receipt Date: 20130319
  Transmission Date: 20140127
  Serious: No
  Sender: FDA-Public Use
  Company Number: JP-ELI_LILLY_AND_COMPANY-JP201301010150

PATIENT
  Sex: Female
  Weight: 50 kg

DRUGS (9)
  1. FORTEO [Suspect]
     Indication: OSTEOPOROSIS
     Dosage: 20 UG, QD
     Route: 058
     Dates: start: 20110808, end: 20130129
  2. ONEALFA [Concomitant]
     Indication: OSTEOPOROSIS
     Dosage: 0.75 UG, QD
     Route: 048
     Dates: start: 201006
  3. FLUITRAN [Concomitant]
     Indication: URINE CALCIUM INCREASED
     Dosage: UNK UNK, QD
     Route: 048
     Dates: start: 201006, end: 20130214
  4. FERROMIA [Concomitant]
     Indication: IRON DEFICIENCY ANAEMIA
     Dosage: 50 MG, QD
     Route: 048
     Dates: end: 20130207
  5. CINAL [Concomitant]
     Indication: MALABSORPTION
     Dosage: 1 DF, QD
     Route: 048
  6. METHYCOBAL [Concomitant]
     Indication: MALABSORPTION
     Dosage: 500 UG, TID
     Route: 048
  7. PURSENNID [Concomitant]
     Indication: CONSTIPATION
     Dosage: 72 MG, QD
     Route: 048
  8. LAXOBERON [Concomitant]
     Indication: CONSTIPATION
     Dosage: UNK, PRN
     Route: 048
  9. VOLTAREN                           /00372302/ [Concomitant]
     Indication: MIGRAINE
     Dosage: 25 MG, PRN
     Route: 048

REACTIONS (4)
  - Hypoalbuminaemia [Not Recovered/Not Resolved]
  - Hypophosphataemia [Not Recovered/Not Resolved]
  - Malabsorption [Unknown]
  - Exocrine pancreatic function test abnormal [Not Recovered/Not Resolved]
